FAERS Safety Report 5443421-0 (Version None)
Quarter: 2007Q3

REPORT INFORMATION
  Report Type: 
  Country: None (occurrence: None)
  Receive Date: 20070905
  Receipt Date: 20070829
  Transmission Date: 20080115
  Serious: Yes (Hospitalization)
  Sender: FDA-Public Use
  Company Number: B0485029A

PATIENT
  Age: 69 Year
  Sex: Male

DRUGS (8)
  1. DEROXAT [Suspect]
     Indication: MAJOR DEPRESSION
     Dosage: 20MG PER DAY
     Route: 048
     Dates: start: 20070601, end: 20070713
  2. XANAX [Suspect]
     Indication: ANXIETY
     Dosage: .25MG THREE TIMES PER DAY
     Route: 048
     Dates: start: 20070705, end: 20070713
  3. LOVENOX [Concomitant]
     Route: 058
  4. CARDENSIEL [Concomitant]
     Indication: CARDIAC FAILURE
     Dosage: 5MG PER DAY
     Route: 048
     Dates: start: 20050601
  5. CORDARONE [Concomitant]
     Indication: CARDIAC FAILURE
     Dosage: 200MG PER DAY
     Route: 048
     Dates: start: 20070601
  6. TRIATEC [Concomitant]
     Indication: CARDIAC FAILURE
     Dosage: 5MG TWICE PER DAY
     Route: 048
     Dates: start: 20070601
  7. INIPOMP [Concomitant]
     Dosage: 40MG PER DAY
     Route: 048
     Dates: start: 20070705
  8. PLAVIX [Concomitant]
     Dosage: 75MG PER DAY
     Route: 048
     Dates: start: 20070601

REACTIONS (11)
  - ALANINE AMINOTRANSFERASE INCREASED [None]
  - ASPARTATE AMINOTRANSFERASE INCREASED [None]
  - BLOOD ALKALINE PHOSPHATASE INCREASED [None]
  - BLOOD BILIRUBIN INCREASED [None]
  - BLOOD LACTATE DEHYDROGENASE INCREASED [None]
  - CHOLESTASIS [None]
  - GAMMA-GLUTAMYLTRANSFERASE INCREASED [None]
  - GENERAL PHYSICAL HEALTH DETERIORATION [None]
  - HEPATOCELLULAR DAMAGE [None]
  - HYPONATRAEMIA [None]
  - MYOCARDIAL INFARCTION [None]
